FAERS Safety Report 9126824 (Version 2)
Quarter: 2013Q1

REPORT INFORMATION
  Report Type: Spontaneous
  Country: IL (occurrence: IL)
  Receive Date: 20130228
  Receipt Date: 20130308
  Transmission Date: 20140127
  Serious: Yes (Death, Hospitalization)
  Sender: FDA-Public Use
  Company Number: IL-EISAI INC-E7389-03538-SPO-IL

PATIENT
  Age: 36 Year
  Sex: Female
  Weight: 45 kg

DRUGS (1)
  1. HALAVEN [Suspect]
     Indication: BREAST CANCER METASTATIC
     Dosage: UNKNOWN
     Route: 041
     Dates: start: 20130103

REACTIONS (1)
  - Neoplasm progression [Fatal]
